FAERS Safety Report 19158937 (Version 3)
Quarter: 2022Q3

REPORT INFORMATION
  Report Type: Spontaneous
  Country: US (occurrence: US)
  Receive Date: 20210420
  Receipt Date: 20220926
  Transmission Date: 20221027
  Serious: Yes (Other)
  Sender: FDA-Public Use
  Company Number: US-ARBOR PHARMACEUTICALS, LLC-US-2020ARB001111

PATIENT
  Sex: Female

DRUGS (6)
  1. TRIPTODUR [Suspect]
     Active Substance: TRIPTORELIN
     Indication: Product used for unknown indication
     Dosage: UNK, SINGLE
     Route: 030
     Dates: start: 20201026, end: 20201026
  2. TRIPTODUR [Suspect]
     Active Substance: TRIPTORELIN
     Dosage: UNK, SINGLE
     Route: 030
     Dates: start: 20210428, end: 20210428
  3. TRIPTODUR [Suspect]
     Active Substance: TRIPTORELIN
     Dosage: UNK, SINGLE
     Route: 030
     Dates: start: 20220328, end: 20220328
  4. TRIPTODUR [Suspect]
     Active Substance: TRIPTORELIN
  5. TRIPTODUR [Suspect]
     Active Substance: TRIPTORELIN
  6. MELATONIN [Concomitant]
     Active Substance: MELATONIN
     Indication: Product used for unknown indication
     Dosage: UNK

REACTIONS (7)
  - Lipoma [Not Recovered/Not Resolved]
  - Joint dislocation [Not Recovered/Not Resolved]
  - Personality change [Unknown]
  - Blood calcium abnormal [Unknown]
  - Muscle spasticity [Not Recovered/Not Resolved]
  - Vaginal haemorrhage [Unknown]
  - Affect lability [Unknown]

NARRATIVE: CASE EVENT DATE: 20200101
